FAERS Safety Report 15196280 (Version 2)
Quarter: 2018Q3

REPORT INFORMATION
  Report Type: Spontaneous
  Country: US (occurrence: US)
  Receive Date: 20180725
  Receipt Date: 20180727
  Transmission Date: 20181010
  Serious: Yes (Hospitalization, Other)
  Sender: FDA-Public Use
  Company Number: US-PFIZER INC-2018294884

PATIENT
  Age: 3 Year
  Sex: Female
  Weight: 14 kg

DRUGS (2)
  1. AMINOPHYLLINE. [Suspect]
     Active Substance: AMINOPHYLLINE
     Indication: ASTHMA
     Dosage: 18 MG/KG, 3X/DAY
     Route: 054
  2. AMINOPHYLLINE. [Suspect]
     Active Substance: AMINOPHYLLINE
     Dosage: 4 DF, AS NEEDED
     Route: 054

REACTIONS (9)
  - Haematemesis [Recovered/Resolved]
  - Respiratory rate decreased [Recovered/Resolved]
  - Restlessness [Recovered/Resolved]
  - Staring [Recovered/Resolved]
  - Albuminuria [Recovered/Resolved]
  - Unresponsive to stimuli [Recovered/Resolved]
  - Toxicity to various agents [Recovered/Resolved]
  - Rhonchi [Recovered/Resolved]
  - Dehydration [Recovered/Resolved]
